FAERS Safety Report 6259818-5 (Version None)
Quarter: 2009Q3

REPORT INFORMATION
  Report Type: 
  Country: None (occurrence: None)
  Receive Date: 20090706
  Receipt Date: 20090706
  Transmission Date: 20100115
  Serious: No
  Sender: FDA-Public Use
  Company Number: None

PATIENT
  Age: 49 Year
  Sex: Female
  Weight: 74.8435 kg

DRUGS (2)
  1. SUMATRIPTAN SUCCINATE [Suspect]
     Indication: MIGRAINE
     Dosage: 100 MG EVERY TWO HOURS PO 100 MG EVERY TWO HOURS PO
     Route: 048
     Dates: start: 20090524, end: 20090527
  2. SUMATRIPTAN SUCCINATE [Suspect]
     Indication: MIGRAINE
     Dosage: 100 MG EVERY TWO HOURS PO 100 MG EVERY TWO HOURS PO
     Route: 048
     Dates: start: 20090602, end: 20090604

REACTIONS (1)
  - DRUG INEFFECTIVE [None]
